FAERS Safety Report 25332540 (Version 2)
Quarter: 2025Q3

REPORT INFORMATION
  Report Type: Spontaneous
  Country: GB (occurrence: GB)
  Receive Date: 20250519
  Receipt Date: 20250808
  Transmission Date: 20251020
  Serious: Yes (Other)
  Sender: MYLAN
  Company Number: GB-MYLANLABS-2025M1041425

PATIENT
  Sex: Male

DRUGS (2)
  1. CLOZARIL [Suspect]
     Active Substance: CLOZAPINE
     Indication: Schizophrenia
     Dosage: 200 MILLIGRAM, BID (TWICE DAILY)
     Dates: start: 20050814
  2. CLOZARIL [Suspect]
     Active Substance: CLOZAPINE

REACTIONS (1)
  - Chronic myeloid leukaemia [Unknown]
